FAERS Safety Report 7796841-3 (Version None)
Quarter: 2011Q4

REPORT INFORMATION
  Report Type: 
  Country: None (occurrence: None)
  Receive Date: 20111005
  Receipt Date: 20110927
  Transmission Date: 20120403
  Serious: Yes (Hospitalization)
  Sender: FDA-Public Use
  Company Number: JP-AMGEN-JPNCT2011047717

PATIENT
  Age: 65 Year
  Sex: Female
  Weight: 54 kg

DRUGS (8)
  1. ADRIAMYCIN PFS [Concomitant]
     Dosage: UNK
     Dates: start: 20110318
  2. DENOSUMAB [Suspect]
     Indication: BREAST CANCER
     Dosage: UNK, Q4WK
     Route: 058
     Dates: start: 20110325, end: 20110811
  3. CYCLOPHOSPHAMIDE [Concomitant]
     Dosage: UNK
     Dates: start: 20110318
  4. CLONAZEPAM [Concomitant]
     Indication: NEUROPATHY PERIPHERAL
     Dosage: BEFORE SLEEP
     Route: 048
     Dates: start: 20110822
  5. CALCIUM CARBONATE [Concomitant]
     Indication: HYPOCALCAEMIA
     Route: 048
     Dates: start: 20110325
  6. MUCOSOLVAN [Concomitant]
     Indication: PRODUCTIVE COUGH
     Dosage: AFTER EVERY MEAL
     Route: 048
     Dates: start: 20110822
  7. TAXOL [Concomitant]
     Dosage: UNK
     Dates: start: 20110620, end: 20110822
  8. DEXTROMETHORPHAN HYDROBROMIDE [Concomitant]
     Indication: ANTITUSSIVE THERAPY
     Dosage: AFTER EVERY MEAL
     Route: 048
     Dates: start: 20110822

REACTIONS (1)
  - PNEUMONIA BACTERIAL [None]
